FAERS Safety Report 23220166 (Version 1)
Quarter: 2023Q4

REPORT INFORMATION
  Report Type: Spontaneous
  Country: US (occurrence: US)
  Receive Date: 20231123
  Receipt Date: 20231123
  Transmission Date: 20240110
  Serious: Yes (Other)
  Sender: FDA-Public Use
  Company Number: US-AUROBINDO-AUR-APL-2023-073721

PATIENT
  Age: 60 Year
  Sex: Female

DRUGS (8)
  1. AZITHROMYCIN [Suspect]
     Active Substance: AZITHROMYCIN
     Indication: Evidence based treatment
     Dosage: 250 MILLIGRAM, DAILY
     Route: 048
  2. AZITHROMYCIN [Suspect]
     Active Substance: AZITHROMYCIN
     Dosage: 250 MILLIGRAM, THREE TIMES WEEKLY
     Route: 048
  3. MOXIFLOXACIN [Suspect]
     Active Substance: MOXIFLOXACIN
     Indication: Evidence based treatment
     Dosage: 400 MILLIGRAM, ONCE A DAY
     Route: 048
  4. TIGECYCLINE [Suspect]
     Active Substance: TIGECYCLINE
     Indication: Evidence based treatment
     Dosage: 50 MILLIGRAM, DAILY
     Route: 042
  5. AMIKACIN [Suspect]
     Active Substance: AMIKACIN
     Indication: Evidence based treatment
     Dosage: 15 MILLIGRAM/KILOGRAM, DAILY
     Route: 042
  6. AMIKACIN [Suspect]
     Active Substance: AMIKACIN
     Dosage: 300 MILLIGRAM, TWO TIMES A DAY
  7. OMADACYCLINE [Concomitant]
     Active Substance: OMADACYCLINE
     Indication: Evidence based treatment
     Dosage: 150 MILLIGRAM, TWO TIMES A DAY
     Route: 048
  8. BEDAQUILINE [Concomitant]
     Active Substance: BEDAQUILINE
     Indication: Evidence based treatment
     Dosage: 100 MILLIGRAM, DAILY
     Route: 048

REACTIONS (2)
  - Deafness [Unknown]
  - Drug resistance [Unknown]
